FAERS Safety Report 7772140-0 (Version None)
Quarter: 2011Q3

REPORT INFORMATION
  Report Type: 
  Country: None (occurrence: None)
  Receive Date: 20110922
  Receipt Date: 20101112
  Transmission Date: 20111222
  Serious: Yes (Hospitalization)
  Sender: FDA-Public Use
  Company Number: US-ASTRAZENECA-2010SE54234

PATIENT
  Age: 31 Year
  Sex: Female

DRUGS (4)
  1. TEGRETOL [Concomitant]
  2. SEROQUEL [Suspect]
     Route: 048
  3. CELEXA [Concomitant]
  4. VALIUM [Concomitant]

REACTIONS (10)
  - DIZZINESS [None]
  - HYPOTENSION [None]
  - CONFUSIONAL STATE [None]
  - INITIAL INSOMNIA [None]
  - SUICIDAL IDEATION [None]
  - HALLUCINATION [None]
  - NIGHTMARE [None]
  - SOMNOLENCE [None]
  - DEPRESSED LEVEL OF CONSCIOUSNESS [None]
  - HALLUCINATION, AUDITORY [None]
